FAERS Safety Report 8809549 (Version 2)
Quarter: 2012Q4

REPORT INFORMATION
  Report Type: 
  Country: GB (occurrence: GB)
  Receive Date: 20120926
  Receipt Date: 20121025
  Transmission Date: 20130627
  Serious: Yes (Hospitalization, Other)
  Sender: FDA-Public Use
  Company Number: GB-PFIZER INC-2012234388

PATIENT
  Age: 47 Year
  Sex: Male

DRUGS (2)
  1. CHAMPIX [Suspect]
     Indication: SMOKING CESSATION THERAPY
     Dosage: 1 mg, 2x/day
     Route: 048
     Dates: start: 20120717, end: 20120814
  2. CITALOPRAM [Concomitant]
     Dosage: 20 mg, UNK
     Route: 048

REACTIONS (2)
  - Mental disorder [Recovered/Resolved]
  - Suicide attempt [Recovered/Resolved]
